FAERS Safety Report 8017257-0 (Version None)
Quarter: 2012Q1

REPORT INFORMATION
  Report Type: 
  Country: None (occurrence: None)
  Receive Date: 20120102
  Receipt Date: 20111221
  Transmission Date: 20120608
  Serious: Yes (Other)
  Sender: FDA-Public Use
  Company Number: PHHY2011DK112374

PATIENT
  Age: 44 Year
  Sex: Female

DRUGS (3)
  1. GLEEVEC [Suspect]
     Indication: NEPHROGENIC SYSTEMIC FIBROSIS
     Dosage: 400 MG, QD
     Route: 048
  2. GLEEVEC [Suspect]
     Dosage: 100 MG, DAILY
     Route: 048
  3. GLEEVEC [Suspect]
     Dosage: 200 MG, DAILY
     Route: 048

REACTIONS (3)
  - CONDITION AGGRAVATED [None]
  - THROMBOCYTOPENIA [None]
  - NEPHROGENIC SYSTEMIC FIBROSIS [None]
